FAERS Safety Report 23608530 (Version 2)
Quarter: 2024Q1

REPORT INFORMATION
  Report Type: Report from Study
  Country: US (occurrence: US)
  Receive Date: 20240308
  Receipt Date: 20240311
  Transmission Date: 20240409
  Serious: No
  Sender: FDA-Public Use
  Company Number: US-SANOFI-01964259

PATIENT
  Age: 53 Year
  Sex: Female

DRUGS (2)
  1. DUPIXENT [Suspect]
     Active Substance: DUPILUMAB
     Indication: Eczema
     Dosage: 600 MG, 1X
     Route: 058
  2. DUPIXENT [Suspect]
     Active Substance: DUPILUMAB
     Dosage: 300 MG, QOW
     Route: 058
     Dates: end: 202402

REACTIONS (18)
  - Gingival pain [Not Recovered/Not Resolved]
  - Headache [Not Recovered/Not Resolved]
  - Stomatitis [Not Recovered/Not Resolved]
  - Balance disorder [Not Recovered/Not Resolved]
  - Sensory disturbance [Not Recovered/Not Resolved]
  - Glossodynia [Unknown]
  - Burning sensation [Unknown]
  - Vision blurred [Not Recovered/Not Resolved]
  - Dry eye [Unknown]
  - Rash [Not Recovered/Not Resolved]
  - Anxiety [Unknown]
  - Stress [Unknown]
  - Feeling hot [Unknown]
  - Dizziness [Unknown]
  - Pruritus [Unknown]
  - Eczema [Unknown]
  - Eye pruritus [Unknown]
  - Oral herpes [Unknown]

NARRATIVE: CASE EVENT DATE: 20240201
